FAERS Safety Report 10466193 (Version 1)
Quarter: 2014Q3

REPORT INFORMATION
  Report Type: Spontaneous
  Country: US (occurrence: None)
  Receive Date: 20140919
  Receipt Date: 20140919
  Transmission Date: 20150326
  Serious: No
  Sender: FDA-Public Use
  Company Number: None

PATIENT

DRUGS (1)
  1. TUBERCULIN PPD [Suspect]
     Active Substance: TUBERCULIN PURIFIED PROTEIN DERIVATIVE
     Dosage: QYR, INTRADERMAL
     Route: 023

REACTIONS (3)
  - Cellulitis [None]
  - Documented hypersensitivity to administered drug [None]
  - Blister [None]

NARRATIVE: CASE EVENT DATE: 20140721
